FAERS Safety Report 4777073-X (Version None)
Quarter: 2005Q3

REPORT INFORMATION
  Report Type: 
  Country: None (occurrence: None)
  Receive Date: 20050922
  Receipt Date: 20050922
  Transmission Date: 20060218
  Serious: Yes (Disabling)
  Sender: FDA-Public Use
  Company Number: None

PATIENT
  Age: 79 Year
  Sex: Male
  Weight: 86.1834 kg

DRUGS (14)
  1. LEVAQUIN [Suspect]
     Indication: ACUTE SINUSITIS
     Dosage: 500 MG QD PO
     Route: 048
     Dates: start: 20050911, end: 20050921
  2. PANGESTYME [Concomitant]
  3. LOPERAMIDE HYDROCHLORIDE [Concomitant]
  4. DIOVAN [Concomitant]
  5. HYDROCHLOROTHIAZIDE [Concomitant]
  6. NORVASC [Concomitant]
  7. PREDNISONE [Concomitant]
  8. ASPIRIN [Concomitant]
  9. AMBIEN [Concomitant]
  10. FOSAMAX [Concomitant]
  11. SPIRIVA [Concomitant]
  12. MULTI-VITAMINS [Concomitant]
  13. CALCIUM CITRATE [Concomitant]
  14. FISH OIL [Concomitant]

REACTIONS (15)
  - ARTHRALGIA [None]
  - BACK PAIN [None]
  - BRONCHOSPASM [None]
  - DIFFICULTY IN WALKING [None]
  - DYSPNOEA EXACERBATED [None]
  - HEADACHE [None]
  - INFLUENZA LIKE ILLNESS [None]
  - JOINT SPRAIN [None]
  - MALAISE [None]
  - MYALGIA [None]
  - NECK PAIN [None]
  - OESOPHAGITIS [None]
  - TENDON DISORDER [None]
  - TENDON INJURY [None]
  - TENDONITIS [None]
